FAERS Safety Report 8228694-3 (Version None)
Quarter: 2012Q1

REPORT INFORMATION
  Report Type: 
  Country: None (occurrence: None)
  Receive Date: 20120322
  Receipt Date: 20120317
  Transmission Date: 20120608
  Serious: Yes (Other)
  Sender: FDA-Public Use
  Company Number: US-PFIZER INC-2011277241

PATIENT
  Age: 40 Year
  Sex: Male

DRUGS (1)
  1. XYNTHA [Suspect]
     Indication: HAEMOPHILIA
     Dosage: MORE THAN 3000IU DAILY
     Dates: start: 20110101

REACTIONS (2)
  - HAEMORRHAGE [None]
  - HEADACHE [None]
